FAERS Safety Report 25941427 (Version 1)
Quarter: 2025Q4

REPORT INFORMATION
  Report Type: Spontaneous
  Country: US (occurrence: US)
  Receive Date: 20251020
  Receipt Date: 20251020
  Transmission Date: 20260119
  Serious: No
  Sender: JOHNSON AND JOHNSON
  Company Number: US-VIIV HEALTHCARE-US2025125964

PATIENT
  Sex: Male

DRUGS (2)
  1. RILPIVIRINE [Suspect]
     Active Substance: RILPIVIRINE
     Indication: HIV test
     Dosage: UNK, Q2M,TWO 3CC IM INJECTIONS TO GLUTEUS
     Route: 030
     Dates: start: 20241114
  2. CABOTEGRAVIR [Suspect]
     Active Substance: CABOTEGRAVIR
     Indication: HIV test
     Dosage: UNK, Q2M,TWO 3CC IM INJECTIONS TO GLUTEUS
     Route: 030
     Dates: start: 20241114

REACTIONS (2)
  - Blood HIV RNA increased [Not Recovered/Not Resolved]
  - Drug ineffective [Unknown]

NARRATIVE: CASE EVENT DATE: 20250926
